FAERS Safety Report 9813700 (Version 2)
Quarter: 2014Q1

REPORT INFORMATION
  Report Type: Spontaneous
  Country: JP (occurrence: JP)
  Receive Date: 20140113
  Receipt Date: 20140113
  Transmission Date: 20141002
  Serious: Yes (Life-Threatening, Hospitalization)
  Sender: FDA-Public Use
  Company Number: JP-B.I. PHARMACEUTICALS,INC./RIDGEFIELD-2012-BP-02369NB

PATIENT
  Age: 88 Year
  Sex: Female
  Weight: 40 kg

DRUGS (10)
  1. PRAZAXA [Suspect]
     Indication: ATRIAL FIBRILLATION
     Dosage: 220 MG
     Route: 048
     Dates: start: 20110727, end: 20120203
  2. PERSANTIN [Suspect]
     Indication: THROMBOSIS PROPHYLAXIS
     Dosage: 75 MG
     Route: 048
     Dates: end: 20120203
  3. NU-LOTAN [Suspect]
     Indication: HYPERTENSION
     Dosage: 25 MG
     Route: 048
     Dates: end: 20120203
  4. LASIX [Suspect]
     Indication: CARDIAC FAILURE CHRONIC
     Dosage: 60 MG
     Route: 048
     Dates: end: 20120203
  5. LASIX [Suspect]
     Dosage: 40 MG
     Route: 065
  6. LANIRAPID [Suspect]
     Indication: ATRIAL FIBRILLATION
     Dosage: 0.05 MG
     Route: 048
     Dates: end: 20120203
  7. MEXITIL [Concomitant]
     Indication: EXTRASYSTOLES
     Dosage: 150 MG
     Route: 048
     Dates: end: 20120203
  8. SELBEX [Concomitant]
     Indication: GASTRITIS
     Dosage: 150 MG
     Route: 048
     Dates: end: 20120203
  9. TAKEPRON [Concomitant]
     Indication: GASTROOESOPHAGEAL REFLUX DISEASE
     Dosage: 15 MG
     Route: 048
     Dates: end: 20120203
  10. ZYLORIC [Concomitant]
     Indication: HYPERURICAEMIA
     Dosage: 100 MG
     Route: 048
     Dates: end: 20120203

REACTIONS (3)
  - Small intestinal haemorrhage [Not Recovered/Not Resolved]
  - Shock haemorrhagic [Not Recovered/Not Resolved]
  - Renal failure acute [Not Recovered/Not Resolved]
